FAERS Safety Report 26181198 (Version 1)
Quarter: 2025Q4

REPORT INFORMATION
  Report Type: Spontaneous
  Country: EU (occurrence: EU)
  Receive Date: 20251221
  Receipt Date: 20251221
  Transmission Date: 20260118
  Serious: Yes (Death, Other)
  Sender: MYLAN
  Company Number: EU-BAYER-2025A161111

PATIENT
  Age: 77 Year
  Sex: Male
  Weight: 77 kg

DRUGS (88)
  1. REVATIO [Suspect]
     Active Substance: SILDENAFIL CITRATE
     Indication: Product used for unknown indication
     Dosage: TOTAL DAILY DOSE 60
     Route: 061
  2. REVATIO [Suspect]
     Active Substance: SILDENAFIL CITRATE
     Dosage: TOTAL DAILY DOSE 60
     Route: 048
  3. REVATIO [Suspect]
     Active Substance: SILDENAFIL CITRATE
     Dosage: TOTAL DAILY DOSE 60
     Route: 048
  4. REVATIO [Suspect]
     Active Substance: SILDENAFIL CITRATE
     Dosage: TOTAL DAILY DOSE 60
     Route: 061
  5. VENTAVIS [Suspect]
     Active Substance: ILOPROST
     Indication: Pulmonary arterial hypertension
     Dosage: TOTAL DAILY DOSE 120
     Dates: start: 20250730
  6. VENTAVIS [Suspect]
     Active Substance: ILOPROST
     Dosage: TOTAL DAILY DOSE 120
     Route: 055
     Dates: start: 20250730
  7. VENTAVIS [Suspect]
     Active Substance: ILOPROST
     Dosage: TOTAL DAILY DOSE 120
     Route: 055
     Dates: start: 20250730
  8. VENTAVIS [Suspect]
     Active Substance: ILOPROST
     Dosage: TOTAL DAILY DOSE 120
     Dates: start: 20250730
  9. UPTRAVI [Suspect]
     Active Substance: SELEXIPAG
     Indication: Product used for unknown indication
     Dosage: UNK
     Route: 065
  10. UPTRAVI [Suspect]
     Active Substance: SELEXIPAG
     Dosage: UNK
  11. UPTRAVI [Suspect]
     Active Substance: SELEXIPAG
     Dosage: UNK
  12. UPTRAVI [Suspect]
     Active Substance: SELEXIPAG
     Dosage: UNK
     Route: 065
  13. UPTRAVI [Suspect]
     Active Substance: SELEXIPAG
     Dosage: 2000
     Dates: start: 20250220, end: 20250730
  14. UPTRAVI [Suspect]
     Active Substance: SELEXIPAG
     Dosage: 2000
     Dates: start: 20250220, end: 20250730
  15. UPTRAVI [Suspect]
     Active Substance: SELEXIPAG
     Dosage: 2000
     Route: 065
     Dates: start: 20250220, end: 20250730
  16. UPTRAVI [Suspect]
     Active Substance: SELEXIPAG
     Dosage: 2000
     Route: 065
     Dates: start: 20250220, end: 20250730
  17. UPTRAVI [Suspect]
     Active Substance: SELEXIPAG
     Dosage: DOSE : 1600
     Route: 065
     Dates: start: 20250121, end: 20250220
  18. UPTRAVI [Suspect]
     Active Substance: SELEXIPAG
     Dosage: DOSE : 1600
     Dates: start: 20250121, end: 20250220
  19. UPTRAVI [Suspect]
     Active Substance: SELEXIPAG
     Dosage: DOSE : 1600
     Dates: start: 20250121, end: 20250220
  20. UPTRAVI [Suspect]
     Active Substance: SELEXIPAG
     Dosage: DOSE : 1600
     Route: 065
     Dates: start: 20250121, end: 20250220
  21. UPTRAVI [Suspect]
     Active Substance: SELEXIPAG
     Dosage: TOTAL DAILY DOSE 1200
     Dates: start: 20240918, end: 20250121
  22. UPTRAVI [Suspect]
     Active Substance: SELEXIPAG
     Dosage: TOTAL DAILY DOSE 1200
     Dates: start: 20240918, end: 20250121
  23. UPTRAVI [Suspect]
     Active Substance: SELEXIPAG
     Dosage: TOTAL DAILY DOSE 1200
     Route: 065
     Dates: start: 20240918, end: 20250121
  24. UPTRAVI [Suspect]
     Active Substance: SELEXIPAG
     Dosage: TOTAL DAILY DOSE 1200
     Route: 065
     Dates: start: 20240918, end: 20250121
  25. UPTRAVI [Suspect]
     Active Substance: SELEXIPAG
     Dosage: TOTAL DAILY DOSE 400
     Dates: start: 20240704, end: 20240818
  26. UPTRAVI [Suspect]
     Active Substance: SELEXIPAG
     Dosage: TOTAL DAILY DOSE 400
     Dates: start: 20240704, end: 20240818
  27. UPTRAVI [Suspect]
     Active Substance: SELEXIPAG
     Dosage: TOTAL DAILY DOSE 400
     Route: 065
     Dates: start: 20240704, end: 20240818
  28. UPTRAVI [Suspect]
     Active Substance: SELEXIPAG
     Dosage: TOTAL DAILY DOSE 400
     Route: 065
     Dates: start: 20240704, end: 20240818
  29. UPTRAVI [Suspect]
     Active Substance: SELEXIPAG
     Dosage: TOTAL DAILY DOSE 800
     Dates: start: 20240818, end: 20240918
  30. UPTRAVI [Suspect]
     Active Substance: SELEXIPAG
     Dosage: TOTAL DAILY DOSE 800
     Route: 065
     Dates: start: 20240818, end: 20240918
  31. UPTRAVI [Suspect]
     Active Substance: SELEXIPAG
     Dosage: TOTAL DAILY DOSE 800
     Dates: start: 20240818, end: 20240918
  32. UPTRAVI [Suspect]
     Active Substance: SELEXIPAG
     Dosage: TOTAL DAILY DOSE 800
     Route: 065
     Dates: start: 20240818, end: 20240918
  33. OPSUMIT [Suspect]
     Active Substance: MACITENTAN
     Indication: Product used for unknown indication
     Dosage: TOTAL DAILY DOSE 10
     Route: 061
  34. OPSUMIT [Suspect]
     Active Substance: MACITENTAN
     Dosage: TOTAL DAILY DOSE 10
     Route: 048
  35. OPSUMIT [Suspect]
     Active Substance: MACITENTAN
     Dosage: TOTAL DAILY DOSE 10
     Route: 048
  36. OPSUMIT [Suspect]
     Active Substance: MACITENTAN
     Dosage: TOTAL DAILY DOSE 10
     Route: 061
  37. BOSENTAN [Suspect]
     Active Substance: BOSENTAN
     Indication: Product used for unknown indication
     Dosage: TOTAL DAILY DOSE 250
     Route: 061
     Dates: start: 20240430, end: 20250527
  38. BOSENTAN [Suspect]
     Active Substance: BOSENTAN
     Dosage: TOTAL DAILY DOSE 250
     Route: 048
     Dates: start: 20240430, end: 20250527
  39. BOSENTAN [Suspect]
     Active Substance: BOSENTAN
     Dosage: TOTAL DAILY DOSE 250
     Route: 048
     Dates: start: 20240430, end: 20250527
  40. BOSENTAN [Suspect]
     Active Substance: BOSENTAN
     Dosage: TOTAL DAILY DOSE 250
     Route: 061
     Dates: start: 20240430, end: 20250527
  41. FUROSEMIDE [Concomitant]
     Active Substance: FUROSEMIDE
     Indication: Cardiac failure
     Dosage: UNK
     Route: 061
  42. FUROSEMIDE [Concomitant]
     Active Substance: FUROSEMIDE
     Dosage: UNK
     Route: 048
  43. FUROSEMIDE [Concomitant]
     Active Substance: FUROSEMIDE
     Dosage: UNK
     Route: 048
  44. FUROSEMIDE [Concomitant]
     Active Substance: FUROSEMIDE
     Dosage: UNK
     Route: 061
  45. Sorbifer [Concomitant]
     Indication: Prophylaxis
     Dosage: UNK
     Route: 061
  46. Sorbifer [Concomitant]
     Dosage: UNK
     Route: 048
  47. Sorbifer [Concomitant]
     Dosage: UNK
     Route: 048
  48. Sorbifer [Concomitant]
     Dosage: UNK
     Route: 061
  49. AMIODARONE HYDROCHLORIDE [Concomitant]
     Active Substance: AMIODARONE HYDROCHLORIDE
     Indication: Atrial fibrillation
     Dosage: UNK
     Route: 061
     Dates: start: 20250523, end: 20250730
  50. AMIODARONE HYDROCHLORIDE [Concomitant]
     Active Substance: AMIODARONE HYDROCHLORIDE
     Dosage: UNK
     Route: 048
     Dates: start: 20250523, end: 20250730
  51. AMIODARONE HYDROCHLORIDE [Concomitant]
     Active Substance: AMIODARONE HYDROCHLORIDE
     Dosage: UNK
     Route: 048
     Dates: start: 20250523, end: 20250730
  52. AMIODARONE HYDROCHLORIDE [Concomitant]
     Active Substance: AMIODARONE HYDROCHLORIDE
     Dosage: UNK
     Route: 061
     Dates: start: 20250523, end: 20250730
  53. JARDIANCE [Concomitant]
     Active Substance: EMPAGLIFLOZIN
     Indication: Diabetes mellitus
     Dosage: UNK
     Route: 061
  54. JARDIANCE [Concomitant]
     Active Substance: EMPAGLIFLOZIN
     Dosage: UNK
     Route: 048
  55. JARDIANCE [Concomitant]
     Active Substance: EMPAGLIFLOZIN
     Dosage: UNK
     Route: 048
  56. JARDIANCE [Concomitant]
     Active Substance: EMPAGLIFLOZIN
     Dosage: UNK
     Route: 061
  57. HYDROCHLOROTHIAZIDE [Concomitant]
     Active Substance: HYDROCHLOROTHIAZIDE
     Indication: Cardiac failure
     Dosage: UNK
     Route: 061
  58. HYDROCHLOROTHIAZIDE [Concomitant]
     Active Substance: HYDROCHLOROTHIAZIDE
     Dosage: UNK
     Route: 048
  59. HYDROCHLOROTHIAZIDE [Concomitant]
     Active Substance: HYDROCHLOROTHIAZIDE
     Dosage: UNK
     Route: 048
  60. HYDROCHLOROTHIAZIDE [Concomitant]
     Active Substance: HYDROCHLOROTHIAZIDE
     Dosage: UNK
     Route: 061
  61. ALLOPURINOL [Concomitant]
     Active Substance: ALLOPURINOL
     Indication: Gout
     Dosage: UNK
     Route: 061
  62. ALLOPURINOL [Concomitant]
     Active Substance: ALLOPURINOL
     Dosage: UNK
     Route: 048
  63. ALLOPURINOL [Concomitant]
     Active Substance: ALLOPURINOL
     Dosage: UNK
     Route: 048
  64. ALLOPURINOL [Concomitant]
     Active Substance: ALLOPURINOL
     Dosage: UNK
     Route: 061
  65. OMEPRAZOLE [Concomitant]
     Active Substance: OMEPRAZOLE
     Indication: Gastrointestinal disorder
     Dosage: UNK
     Route: 061
  66. OMEPRAZOLE [Concomitant]
     Active Substance: OMEPRAZOLE
     Dosage: UNK
     Route: 048
  67. OMEPRAZOLE [Concomitant]
     Active Substance: OMEPRAZOLE
     Dosage: UNK
     Route: 048
  68. OMEPRAZOLE [Concomitant]
     Active Substance: OMEPRAZOLE
     Dosage: UNK
     Route: 061
  69. ELIQUIS [Concomitant]
     Active Substance: APIXABAN
     Indication: Anticoagulant therapy
     Dosage: UNK
     Route: 061
  70. ELIQUIS [Concomitant]
     Active Substance: APIXABAN
     Dosage: UNK
     Route: 048
  71. ELIQUIS [Concomitant]
     Active Substance: APIXABAN
     Dosage: UNK
     Route: 048
  72. ELIQUIS [Concomitant]
     Active Substance: APIXABAN
     Dosage: UNK
     Route: 061
  73. XARELTO [Concomitant]
     Active Substance: RIVAROXABAN
     Indication: Atrial fibrillation
     Dosage: UNK
     Route: 061
  74. XARELTO [Concomitant]
     Active Substance: RIVAROXABAN
     Dosage: UNK
     Route: 048
  75. XARELTO [Concomitant]
     Active Substance: RIVAROXABAN
     Dosage: UNK
     Route: 048
  76. XARELTO [Concomitant]
     Active Substance: RIVAROXABAN
     Dosage: UNK
     Route: 061
  77. Atrox [Concomitant]
     Indication: Hyperlipidaemia
     Dosage: UNK
     Route: 061
  78. Atrox [Concomitant]
     Dosage: UNK
     Route: 048
  79. Atrox [Concomitant]
     Dosage: UNK
     Route: 048
  80. Atrox [Concomitant]
     Dosage: UNK
     Route: 061
  81. POTASSIUM CHLORIDE [Concomitant]
     Active Substance: POTASSIUM CHLORIDE
     Indication: Hypokalaemia
     Dosage: UNK
     Route: 061
  82. POTASSIUM CHLORIDE [Concomitant]
     Active Substance: POTASSIUM CHLORIDE
     Dosage: UNK
     Route: 048
  83. POTASSIUM CHLORIDE [Concomitant]
     Active Substance: POTASSIUM CHLORIDE
     Dosage: UNK
     Route: 048
  84. POTASSIUM CHLORIDE [Concomitant]
     Active Substance: POTASSIUM CHLORIDE
     Dosage: UNK
     Route: 061
  85. TORSEMIDE [Concomitant]
     Active Substance: TORSEMIDE
     Indication: Cardiac failure
     Dosage: UNK
     Route: 061
  86. TORSEMIDE [Concomitant]
     Active Substance: TORSEMIDE
     Dosage: UNK
     Route: 048
  87. TORSEMIDE [Concomitant]
     Active Substance: TORSEMIDE
     Dosage: UNK
     Route: 048
  88. TORSEMIDE [Concomitant]
     Active Substance: TORSEMIDE
     Dosage: UNK
     Route: 061

REACTIONS (2)
  - Death [Fatal]
  - Pulmonary hypertension [Unknown]

NARRATIVE: CASE EVENT DATE: 20250730
